FAERS Safety Report 15112482 (Version 3)
Quarter: 2018Q3

REPORT INFORMATION
  Report Type: Spontaneous
  Country: JP (occurrence: JP)
  Receive Date: 20180705
  Receipt Date: 20180919
  Transmission Date: 20181010
  Serious: Yes (Hospitalization, Disabling, Other)
  Sender: FDA-Public Use
  Company Number: JP-BAYER-2018-122003

PATIENT
  Age: 71 Year
  Sex: Male
  Weight: 66.75 kg

DRUGS (3)
  1. XOFIGO [Suspect]
     Active Substance: RADIUM RA-223 DICHLORIDE
     Indication: HORMONE-REFRACTORY PROSTATE CANCER
     Dosage: 55KBQ/KG, ONCE
     Route: 042
     Dates: start: 20180502, end: 20180502
  2. XOFIGO [Suspect]
     Active Substance: RADIUM RA-223 DICHLORIDE
     Indication: METASTASES TO BONE
     Dosage: 55KBQ/KG, ONCE
     Route: 042
     Dates: start: 20180530, end: 20180530
  3. XOFIGO [Suspect]
     Active Substance: RADIUM RA-223 DICHLORIDE
     Indication: METASTASES TO BONE
     Dosage: 55KBQ/KG, ONCE
     Route: 042
     Dates: start: 20180404, end: 20180404

REACTIONS (9)
  - Thrombocytopenia [Not Recovered/Not Resolved]
  - Bone marrow failure [Not Recovered/Not Resolved]
  - Anaemia [Not Recovered/Not Resolved]
  - Neutrophil count decreased [Not Recovered/Not Resolved]
  - Decreased appetite [Recovered/Resolved with Sequelae]
  - Intestinal obstruction [Recovered/Resolved with Sequelae]
  - Diarrhoea [Recovered/Resolved with Sequelae]
  - White blood cell count decreased [Not Recovered/Not Resolved]
  - Bladder cancer recurrent [Not Recovered/Not Resolved]

NARRATIVE: CASE EVENT DATE: 20180427
